FAERS Safety Report 20232605 (Version 4)
Quarter: 2022Q1

REPORT INFORMATION
  Report Type: Spontaneous
  Country: CO (occurrence: CO)
  Receive Date: 20211227
  Receipt Date: 20220303
  Transmission Date: 20220424
  Serious: Yes (Other)
  Sender: FDA-Public Use
  Company Number: CO-PFIZER INC-202101794941

PATIENT
  Age: 69 Year
  Sex: Female

DRUGS (1)
  1. SUTENT [Suspect]
     Active Substance: SUNITINIB MALATE
     Indication: Metastatic renal cell carcinoma
     Dosage: 50 MG FOR 28 DAYS
     Route: 048
     Dates: start: 202111

REACTIONS (16)
  - Swelling face [Unknown]
  - Periorbital swelling [Unknown]
  - Burn oral cavity [Recovered/Resolved]
  - Ageusia [Recovered/Resolved]
  - Stomatitis [Recovered/Resolved]
  - Tongue disorder [Recovered/Resolved]
  - Genital ulceration [Recovered/Resolved]
  - Skin discolouration [Recovered/Resolved]
  - Dizziness [Recovered/Resolved]
  - Vomiting [Recovered/Resolved]
  - Tongue exfoliation [Unknown]
  - Swelling [Recovered/Resolved]
  - Genital burning sensation [Recovered/Resolved]
  - Headache [Recovered/Resolved]
  - Abdominal pain [Recovered/Resolved]
  - Burning sensation [Recovered/Resolved]

NARRATIVE: CASE EVENT DATE: 20211101
